FAERS Safety Report 11587518 (Version 1)
Quarter: 2015Q4

REPORT INFORMATION
  Report Type: Report from Study
  Country: US (occurrence: US)
  Receive Date: 20151001
  Receipt Date: 20151001
  Transmission Date: 20160304
  Serious: No
  Sender: FDA-Public Use
  Company Number: US-CELGENEUS-USA-2015085242

PATIENT

DRUGS (2)
  1. RITUXAN [Concomitant]
     Active Substance: RITUXIMAB
     Indication: NEOPLASM MALIGNANT
     Route: 065
  2. REVLIMID [Suspect]
     Active Substance: LENALIDOMIDE
     Indication: NEOPLASM MALIGNANT
     Route: 048

REACTIONS (11)
  - Fatigue [Unknown]
  - Nausea [Unknown]
  - Pain [Unknown]
  - Dysphagia [Unknown]
  - Appetite disorder [Unknown]
  - Insomnia [Unknown]
  - Constipation [Unknown]
  - Aphonia [Unknown]
  - Cough [Unknown]
  - Alopecia [Unknown]
  - Weight decreased [Unknown]
